FAERS Safety Report 15884990 (Version 1)
Quarter: 2019Q1

REPORT INFORMATION
  Report Type: Spontaneous
  Country: CH (occurrence: CH)
  Receive Date: 20190129
  Receipt Date: 20190129
  Transmission Date: 20190417
  Serious: Yes (Hospitalization, Other)
  Sender: FDA-Public Use
  Company Number: CH-PFIZER INC-2019034371

PATIENT
  Age: 78 Year
  Sex: Male
  Weight: 97 kg

DRUGS (21)
  1. NOVALGIN (METAMIZOLE SODIUM) [Concomitant]
     Active Substance: METAMIZOLE SODIUM
     Dosage: 500 MG, 4X/DAY (EVERY 6 HOURS, 1-1-1-1)
     Route: 048
  2. CINNAGERON [Concomitant]
     Active Substance: CINNARIZINE
     Dosage: 75 MG, 1X/DAY (EVERY 24 HOURS, 1-0-0-0)
     Route: 048
  3. ZOLDORM [Concomitant]
     Active Substance: ZOLPIDEM TARTRATE
     Dosage: 10 MG, 1X/DAY (EVERY 24 HOURS, 0-0-0-1)
     Route: 048
  4. SERETIDE [Concomitant]
     Active Substance: FLUTICASONE PROPIONATE\SALMETEROL XINAFOATE
     Dosage: 500 UG, 2X/DAY (EVERY 12 HOURS, 2-0-2-0)
     Route: 055
  5. AMIODARON-MEPHA [Interacting]
     Active Substance: AMIODARONE
     Indication: ATRIAL FIBRILLATION
     Dosage: 200 MG, 1X/DAY (EVERY 24 HOURS, 1-0-0-0)
     Route: 048
     Dates: start: 201805, end: 20181218
  6. TOREM [TORASEMIDE] [Concomitant]
     Active Substance: TORSEMIDE
     Dosage: 200 MG, 1X/DAY (EVERY 24 HOURS, 1-0-0-0)
     Route: 048
  7. BELOC ZOK [Concomitant]
     Active Substance: METOPROLOL SUCCINATE
     Dosage: 50 MG, 1X/DAY (EVERY 24 HOURS, 1-0-0-0)
     Route: 048
  8. TRIMIPRAMIN SANDOZ [TRIMIPRAMINE MALEATE] [Concomitant]
     Indication: DEPRESSION
     Dosage: 25 MG, 1X/DAY (EVERY 24 HOURS, 0-0-1-0)
     Route: 048
  9. MAGNESIOCARD ORANGE [Concomitant]
     Dosage: 10 MMOL, 2X/DAY (EVERY 12 HOURS, 1-0-1-0)
     Route: 048
  10. TRUSOPT [Concomitant]
     Active Substance: DORZOLAMIDE HYDROCHLORIDE
     Dosage: 1 GTT, 2X/DAY (EVERY 12 HOURS, 1-0-1-0)
     Route: 047
  11. LAXOBERON [Concomitant]
     Active Substance: SODIUM PICOSULFATE
     Indication: CONSTIPATION
     Dosage: 30 GTT, 1X/DAY (EVERY 24 HOURS,  0-0-30-0)
     Route: 048
  12. SPIRICORT [Concomitant]
     Active Substance: PREDNISOLONE
     Indication: INFLAMMATION
     Dosage: 5 MG, 1X/DAY (EVERY 24 HOURS, 1-0-0-0)
     Route: 048
  13. PRIMPERAN [Concomitant]
     Active Substance: METOCLOPRAMIDE HYDROCHLORIDE
     Dosage: 10 MG, 1X/DAY (EVERY 24 HOURS)
     Route: 048
  14. TRANSIPEG [MACROGOL 3350;POTASSIUM CHLORIDE;SODIUM BICARBONATE;SODIUM [Concomitant]
     Indication: CONSTIPATION
     Dosage: 1 DF, 1X/DAY (EVERY 24 HOURS, 2-0-0-0)
     Route: 048
  15. TRANSTEC [Concomitant]
     Active Substance: BUPRENORPHINE
     Dosage: 70 UG (70 MCG/H 8 MATRIX PATCH EVERY 4 DAYS)
     Route: 003
  16. NITRODERM [Concomitant]
     Active Substance: NITROGLYCERIN
     Indication: ANGINA PECTORIS
     Dosage: 5 MG, 1X/DAY (EVERY 24 HOURS, 20:00 } 1 PC)
     Route: 062
  17. ATORVA PFIZER [Suspect]
     Active Substance: ATORVASTATIN
     Indication: CORONARY ARTERY DISEASE
     Dosage: 40 MG, 1X/DAY (EVERY 24 HOURS, 1-0-0-0, POSSIBLY RECHALLENGE 12-18DEC2018)
     Route: 048
     Dates: end: 20181206
  18. ASPIRIN CARDIO [Concomitant]
     Active Substance: ASPIRIN
     Dosage: 100 MG, 1X/DAY (EVERY 24 HOURS, 1-0-0-0)
     Route: 048
  19. ALDACTONE [Concomitant]
     Active Substance: SPIRONOLACTONE
     Dosage: 25 MG, 1X/DAY (EVERY 24 HOURS, 1-0-0-0)
     Route: 048
  20. PANTOPRAZOL AXAPHARM [Concomitant]
     Active Substance: PANTOPRAZOLE SODIUM
     Indication: GASTRITIS
     Dosage: 40 MG, 1X/DAY (EVERY 24 HOURS, 0-0-1-0)
     Route: 048
  21. HUMALOG [Concomitant]
     Active Substance: INSULIN LISPRO
     Indication: DIABETES MELLITUS
     Dosage: 20 IU, 1X/DAY (EVERY 24 HOURS, 20-0-0-0)
     Route: 058

REACTIONS (3)
  - Drug interaction [Recovering/Resolving]
  - Hypothyroidism [Recovering/Resolving]
  - Blood creatine phosphokinase BB increased [Recovering/Resolving]

NARRATIVE: CASE EVENT DATE: 201805
